FAERS Safety Report 6345993-0 (Version None)
Quarter: 2009Q3

REPORT INFORMATION
  Report Type: 
  Country: None (occurrence: None)
  Receive Date: 20090827
  Receipt Date: 20080829
  Transmission Date: 20100115
  Serious: Yes (Hospitalization)
  Sender: FDA-Public Use
  Company Number: 2008-BP-13618RO

PATIENT
  Age: 59 Year
  Sex: Male

DRUGS (15)
  1. METHOTREXATE [Suspect]
     Indication: RHEUMATOID ARTHRITIS
     Dosage: PO
     Route: 048
  2. HUMIRA [Suspect]
     Indication: RHEUMATOID ARTHRITIS
     Dosage: SC
     Route: 058
  3. ACETYLSALICYLIC ACID SRT [Concomitant]
  4. CLOPIDOGREL (CLOPIDOGREL) (CLOPIDOGREL) [Concomitant]
  5. METOPROLOL TARTRATE (METOPROLOL TARTRATE) (METOPROLOL TARTRATE) [Concomitant]
  6. PRAVASTATIN SODIUM (PRAVASTATIN SODIUM) (PRAVASTATIN SODIUM) [Concomitant]
  7. EZETIMIBE [Concomitant]
  8. FOLIC ACID (FOLIC ACID) (FOLIC ACID) [Concomitant]
  9. DILTIAZEM HYDROCHLORIDE (DILTIAZEM HYDROCHLORIDE) (DILTIAZEM HYDROCHLO [Concomitant]
  10. MORNIFLUMATE (MORNIFLUMATE) (MORNIFLUMATE) [Concomitant]
  11. MELOXICAM [Concomitant]
  12. LEUCOVORAN (FOLINIC ACID) (FOLINIC ACID) [Concomitant]
  13. DULOXETINE HYDROCHLORIDE (DULOXETINE HYDROCHLORIDE) (DULOXETINE HYDROC [Concomitant]
  14. AMOXICILLIN [Concomitant]
  15. VICODIN (VICODIN) (PARACETAMOL, HYDROCODONE BITARTRATE) [Concomitant]

REACTIONS (1)
  - PNEUMONIA [None]
